FAERS Safety Report 15207472 (Version 3)
Quarter: 2018Q3

REPORT INFORMATION
  Report Type: Spontaneous
  Country: US (occurrence: US)
  Receive Date: 20180727
  Receipt Date: 20180921
  Transmission Date: 20181010
  Serious: Yes (Other)
  Sender: FDA-Public Use
  Company Number: US-ASTRAZENECA-2018SE94687

PATIENT
  Age: 70 Year
  Sex: Female
  Weight: 79.4 kg

DRUGS (13)
  1. PEPCID AC [Concomitant]
     Active Substance: FAMOTIDINE
     Indication: MULTIPLE ALLERGIES
     Route: 048
     Dates: start: 2017
  2. CALCIUM AND D3 [Concomitant]
     Indication: ROUTINE HEALTH MAINTENANCE
     Route: 048
     Dates: start: 1985
  3. BIOTIN [Concomitant]
     Active Substance: BIOTIN
     Indication: HAIR DISORDER
     Route: 048
     Dates: start: 2017
  4. SYMBICORT [Suspect]
     Active Substance: BUDESONIDE\FORMOTEROL FUMARATE DIHYDRATE
     Indication: DYSPNOEA
     Dosage: 80/4.5, 2 PUFFS TWICE A DAY
     Route: 055
     Dates: start: 2013
  5. SYMBICORT [Suspect]
     Active Substance: BUDESONIDE\FORMOTEROL FUMARATE DIHYDRATE
     Indication: CHRONIC OBSTRUCTIVE PULMONARY DISEASE
     Dosage: 80/4.5, 2 PUFFS TWICE A DAY
     Route: 055
     Dates: start: 2013
  6. LORAZEPAM. [Concomitant]
     Active Substance: LORAZEPAM
     Indication: CLAUSTROPHOBIA
     Dosage: 0.5MG AS REQUIRED
     Route: 048
  7. FUROSEMIDE. [Concomitant]
     Active Substance: FUROSEMIDE
     Indication: FLUID RETENTION
     Route: 048
  8. BIOTIN [Concomitant]
     Active Substance: BIOTIN
     Indication: SKIN DISORDER
     Route: 048
     Dates: start: 2017
  9. TUDORZA PRESSAIR [Suspect]
     Active Substance: ACLIDINIUM BROMIDE
     Indication: CHRONIC OBSTRUCTIVE PULMONARY DISEASE
     Dosage: 400 MCG, 1 PUFF 12 HOURS APART
     Route: 055
     Dates: start: 20180619
  10. ANASTROZOLE. [Suspect]
     Active Substance: ANASTROZOLE
     Indication: BREAST CANCER
     Route: 048
     Dates: start: 201806
  11. BIOTIN [Concomitant]
     Active Substance: BIOTIN
     Indication: NAIL DISORDER
     Route: 048
     Dates: start: 2017
  12. LISINOPRIL. [Suspect]
     Active Substance: LISINOPRIL
     Indication: HYPERTENSION
     Route: 048
     Dates: start: 2014
  13. LORAZEPAM. [Concomitant]
     Active Substance: LORAZEPAM
     Indication: ANXIETY
     Dosage: 0.5MG AS REQUIRED
     Route: 048

REACTIONS (13)
  - Eye pruritus [Unknown]
  - Emphysema [Unknown]
  - Off label use [Unknown]
  - Dry eye [Unknown]
  - Hypersensitivity [Unknown]
  - Device issue [Unknown]
  - Breast cancer female [Unknown]
  - Product use in unapproved indication [Unknown]
  - Hypertension [Unknown]
  - Memory impairment [Unknown]
  - Lacrimation increased [Unknown]
  - Intentional device misuse [Unknown]
  - Device malfunction [Unknown]

NARRATIVE: CASE EVENT DATE: 2013
